FAERS Safety Report 9747046 (Version 1)
Quarter: 2013Q4

REPORT INFORMATION
  Report Type: Spontaneous
  Country: US (occurrence: BR)
  Receive Date: 20131211
  Receipt Date: 20131211
  Transmission Date: 20140711
  Serious: Yes (Other)
  Sender: FDA-Public Use
  Company Number: US-ABBVIE-13P-163-1178373-00

PATIENT
  Age: 36 Year
  Sex: Female
  Weight: 71 kg

DRUGS (3)
  1. SYNTHROID [Suspect]
     Indication: THYROIDECTOMY
  2. SYNTHROID [Suspect]
     Route: 048
     Dates: start: 20130830
  3. SERTRALINE [Concomitant]
     Indication: DEPRESSION
     Route: 048
     Dates: start: 2009

REACTIONS (1)
  - Metastatic neoplasm [Recovered/Resolved]
